FAERS Safety Report 22647313 (Version 2)
Quarter: 2023Q4

REPORT INFORMATION
  Report Type: Report from Study
  Country: CA (occurrence: CA)
  Receive Date: 20230627
  Receipt Date: 20231218
  Transmission Date: 20240110
  Serious: Yes (Hospitalization, Other)
  Sender: FDA-Public Use
  Company Number: CA-JNJFOC-20230652024

PATIENT
  Age: 83 Year
  Sex: Female
  Weight: 67 kg

DRUGS (1)
  1. STELARA [Suspect]
     Active Substance: USTEKINUMAB
     Indication: Psoriasis
     Route: 058
     Dates: start: 20100927

REACTIONS (4)
  - Abscess intestinal [Recovering/Resolving]
  - Appendiceal abscess [Recovering/Resolving]
  - Fall [Unknown]
  - Wrist fracture [Recovering/Resolving]

NARRATIVE: CASE EVENT DATE: 20230101
